FAERS Safety Report 24704143 (Version 1)
Quarter: 2024Q4

REPORT INFORMATION
  Report Type: Spontaneous
  Country: FR (occurrence: FR)
  Receive Date: 20241206
  Receipt Date: 20241206
  Transmission Date: 20250115
  Serious: Yes (Hospitalization, Other)
  Sender: AUROBINDO
  Company Number: FR-AFSSAPS-TO2024002114

PATIENT
  Age: 79 Year
  Sex: Female

DRUGS (2)
  1. PRAVASTATIN [Suspect]
     Active Substance: PRAVASTATIN
     Indication: Hypercholesterolaemia
     Dosage: 20 MILLIGRAM, ONCE A DAY
     Route: 048
     Dates: end: 20240213
  2. ESTAZOLAM [Suspect]
     Active Substance: ESTAZOLAM
     Indication: Anxiety
     Dosage: 2 MILLIGRAM, ONCE A DAY
     Route: 048
     Dates: end: 20240213

REACTIONS (3)
  - Fall [Recovered/Resolved]
  - Gamma-glutamyltransferase increased [Recovered/Resolved]
  - Mixed liver injury [Recovered/Resolved]

NARRATIVE: CASE EVENT DATE: 20240213
